FAERS Safety Report 8584367 (Version 2)
Quarter: 2013Q3

REPORT INFORMATION
  Report Type: Spontaneous
  Country: US (occurrence: US)
  Receive Date: 20120529
  Receipt Date: 20130909
  Transmission Date: 20140515
  Serious: Yes (Hospitalization)
  Sender: FDA-Public Use
  Company Number: US-BRISTOL-MYERS SQUIBB COMPANY-16614190

PATIENT
  Age: 32 Year
  Sex: Male
  Weight: 79.36 kg

DRUGS (3)
  1. ABILIFY TABS 5 MG [Suspect]
     Indication: PERSONALITY DISORDER
     Dates: end: 20120517
  2. SUBOXONE [Concomitant]
  3. KLONOPIN [Concomitant]

REACTIONS (5)
  - Dyspnoea [Unknown]
  - Tremor [Unknown]
  - Panic attack [Unknown]
  - Psychotic disorder [Unknown]
  - Expired drug administered [Unknown]
